FAERS Safety Report 17920357 (Version 2)
Quarter: 2020Q3

REPORT INFORMATION
  Report Type: Spontaneous
  Country: AR (occurrence: AR)
  Receive Date: 20200620
  Receipt Date: 20200707
  Transmission Date: 20201103
  Serious: Yes (Other)
  Sender: FDA-Public Use
  Company Number: NVSC2020AR172322

PATIENT
  Sex: Male

DRUGS (3)
  1. ANTI INFLAMMATORY [Concomitant]
     Indication: PAIN
     Dosage: UNK
     Route: 065
  2. OXA B12 [Concomitant]
     Indication: PAIN
     Dosage: UNK, ONCE OR TWICE PER YEAR
     Route: 065
  3. EXFORGE HCT [Suspect]
     Active Substance: AMLODIPINE BESYLATE\HYDROCHLOROTHIAZIDE\VALSARTAN
     Indication: HYPERTENSION
     Dosage: 1 DF, QD (160/12.5/5 MG)
     Route: 065

REACTIONS (4)
  - Chest pain [Recovered/Resolved]
  - Obesity [Unknown]
  - Weight decreased [Unknown]
  - Type 2 diabetes mellitus [Unknown]

NARRATIVE: CASE EVENT DATE: 2019
